FAERS Safety Report 25110072 (Version 1)
Quarter: 2025Q1

REPORT INFORMATION
  Report Type: Report from Study
  Country: TW (occurrence: TW)
  Receive Date: 20250324
  Receipt Date: 20250324
  Transmission Date: 20250409
  Serious: Yes (Hospitalization)
  Sender: ABBVIE
  Company Number: TW-ABBVIE-6189075

PATIENT
  Age: 75 Year
  Sex: Male
  Weight: 65 kg

DRUGS (4)
  1. RINVOQ [Suspect]
     Active Substance: UPADACITINIB
     Indication: Rheumatoid arthritis
     Route: 048
     Dates: start: 20221129
  2. HYDROXYCHLOROQUINE [Concomitant]
     Active Substance: HYDROXYCHLOROQUINE
     Indication: Rheumatoid arthritis
     Route: 048
     Dates: start: 20171215
  3. Utraphen [Concomitant]
     Indication: Rheumatoid arthritis
     Dosage: TRAMADOL 37.5MG+ACETAMINOPHEN 325MG
     Route: 048
     Dates: start: 20180327
  4. PREDNISOLONE [Concomitant]
     Active Substance: PREDNISOLONE
     Indication: Product used for unknown indication
     Dates: start: 20200120

REACTIONS (1)
  - Dialysis [Not Recovered/Not Resolved]

NARRATIVE: CASE EVENT DATE: 20250220
